FAERS Safety Report 9308447 (Version 4)
Quarter: 2014Q3

REPORT INFORMATION
  Report Type: Report from Study
  Country: GB (occurrence: GB)
  Receive Date: 20130524
  Receipt Date: 20140722
  Transmission Date: 20150326
  Serious: Yes (Death, Hospitalization)
  Sender: FDA-Public Use
  Company Number: GB-BRISTOL-MYERS SQUIBB COMPANY-18766329

PATIENT
  Age: 55 Year
  Sex: Female

DRUGS (3)
  1. DOXYCYCLINE. [Concomitant]
     Active Substance: DOXYCYCLINE
     Dates: start: 20130405, end: 20130405
  2. CARBOPLATIN. [Suspect]
     Active Substance: CARBOPLATIN
     Indication: NON-SMALL CELL LUNG CANCER
     Dosage: LAST DOSE ON 18MAR2013?NO OF COURSE: 1
     Route: 042
     Dates: start: 20130318, end: 20130318
  3. PACLITAXEL. [Suspect]
     Active Substance: PACLITAXEL
     Indication: NON-SMALL CELL LUNG CANCER
     Dosage: LAST DOSE ON 18MAR2013?NO OF COURSE: 1
     Route: 042
     Dates: start: 20130318, end: 20130318

REACTIONS (3)
  - Pulmonary embolism [Fatal]
  - Malignant neoplasm progression [Fatal]
  - Pericardial effusion [Not Recovered/Not Resolved]

NARRATIVE: CASE EVENT DATE: 20130406
